FAERS Safety Report 22601048 (Version 1)
Quarter: 2023Q2

REPORT INFORMATION
  Report Type: Spontaneous
  Country: CN (occurrence: CN)
  Receive Date: 20230614
  Receipt Date: 20230614
  Transmission Date: 20230722
  Serious: Yes (Other)
  Sender: FDA-Public Use
  Company Number: CN-PFIZER INC-PV202300103441

PATIENT
  Age: 76 Year
  Sex: Male
  Weight: 60 kg

DRUGS (9)
  1. NIRMATRELVIR\RITONAVIR [Suspect]
     Active Substance: NIRMATRELVIR\RITONAVIR
     Indication: Pneumonia viral
     Dosage: 400 MG, 2X/DAY
     Route: 048
     Dates: start: 20230524, end: 20230528
  2. NADROPARIN CALCIUM [Suspect]
     Active Substance: NADROPARIN CALCIUM
     Indication: Thrombosis prophylaxis
     Dosage: 4100 IU, 1X/DAY
     Route: 058
     Dates: start: 20230524, end: 20230602
  3. SODIUM CHLORIDE [Concomitant]
     Active Substance: SODIUM CHLORIDE
     Indication: Vehicle solution use
     Dosage: 100 ML, 1X/DAY
     Route: 041
     Dates: start: 20230524, end: 20230601
  4. SODIUM CHLORIDE [Concomitant]
     Active Substance: SODIUM CHLORIDE
     Dosage: 100 ML, 2X/DAY
     Route: 041
     Dates: start: 20230524, end: 20230609
  5. CEFOPERAZONE SODIUM\SULBACTAM SODIUM [Concomitant]
     Active Substance: CEFOPERAZONE SODIUM\SULBACTAM SODIUM
     Indication: Infection
     Dosage: 2 G, 2X/DAY
     Route: 041
     Dates: start: 20230524, end: 20230609
  6. METHYLPREDNISOLONE SODIUM SUCCINATE [Concomitant]
     Active Substance: METHYLPREDNISOLONE SODIUM SUCCINATE
     Indication: Antiinflammatory therapy
     Dosage: 40 MG, 1X/DAY
     Route: 041
     Dates: start: 20230524, end: 20230601
  7. AMMONIUM GLYCYRRHIZATE\CYSTEINE HYDROCHLORIDE\GLYCINE [Concomitant]
     Active Substance: AMMONIUM GLYCYRRHIZATE\CYSTEINE HYDROCHLORIDE\GLYCINE
     Dosage: 5% GS 250ML + COMPOUND GLYCYRRHIZIN 1.38G QD
     Route: 041
     Dates: start: 20230524
  8. GLUTATHIONE [Concomitant]
     Active Substance: GLUTATHIONE
     Dosage: 5% GS 100ML + GLUTATHIONE 1.2G QD
     Route: 041
     Dates: start: 20230529
  9. BIFENDATE [Concomitant]
     Active Substance: BIFENDATE
     Dosage: 15 MG, 3X/DAY
     Dates: start: 20230602

REACTIONS (2)
  - Hepatic function abnormal [Recovering/Resolving]
  - Off label use [Unknown]

NARRATIVE: CASE EVENT DATE: 20230524
